FAERS Safety Report 8086919 (Version 5)
Quarter: 2012Q4

REPORT INFORMATION
  Report Type: 
  Country: US (occurrence: US)
  Receive Date: 20110811
  Receipt Date: 20120927
  Transmission Date: 20130627
  Serious: Yes (Death, Other)
  Sender: FDA-Public Use
  Company Number: US-BAYER-2011-069288

PATIENT
  Sex: Male
  Weight: 61 kg

DRUGS (14)
  1. MAGNEVIST [Suspect]
     Indication: NUCLEAR MAGNETIC RESONANCE IMAGING
     Dosage: UNK UNK, ONCE
     Dates: start: 20060326, end: 20060326
  2. MAGNEVIST [Suspect]
     Indication: NUCLEAR MAGNETIC RESONANCE IMAGING
     Dosage: UNK
     Dates: start: 20060328
  3. GADOLINIUM [Suspect]
     Indication: NUCLEAR MAGNETIC RESONANCE IMAGING ABDOMINAL
     Dosage: UNK
     Dates: start: 200603, end: 200803
  4. GADOLINIUM [Suspect]
     Indication: NUCLEAR MAGNETIC RESONANCE IMAGING ABDOMINAL
     Dosage: UNK
     Dates: start: 20060130, end: 20060130
  5. GADOLINIUM [Suspect]
     Indication: NUCLEAR MAGNETIC RESONANCE IMAGING ABDOMINAL
     Dosage: UNK
     Dates: start: 20060329, end: 20060329
  6. METOPROLOL [Concomitant]
  7. RENAGEL [SEVELAMER] [Concomitant]
  8. EPOGEN [Concomitant]
  9. LOSARTAN [Concomitant]
  10. DIOVAN [Concomitant]
  11. HECTOROL [Concomitant]
  12. PLAVIX [Concomitant]
     Dosage: 75 mg, UNK
     Route: 048
  13. ACETYLSALICYLIC ACID (} 100 MG) [Concomitant]
     Dosage: 325 mg, UNK
     Route: 048
  14. FOLIC ACID [Concomitant]
     Dosage: 1 mg, UNK
     Route: 048

REACTIONS (10)
  - Nephrogenic systemic fibrosis [Fatal]
  - Pruritus generalised [Fatal]
  - Anxiety [None]
  - Emotional distress [None]
  - Anhedonia [None]
  - Pain [Fatal]
  - Deformity [Fatal]
  - Scar [Fatal]
  - Injury [Fatal]
  - Drug hypersensitivity [None]
